FAERS Safety Report 9468154 (Version 1)
Quarter: 2013Q3

REPORT INFORMATION
  Report Type: Spontaneous
  Country: NL (occurrence: None)
  Receive Date: 20130814
  Receipt Date: 20130814
  Transmission Date: 20140515
  Serious: Yes (Death)
  Sender: FDA-Public Use
  Company Number: 1830303

PATIENT
  Age: 58 Year
  Sex: Female

DRUGS (3)
  1. VANCOMYCIN HYDROCHLORIDE [Suspect]
     Indication: ANTIBIOTIC THERAPY
  2. CIPROFLOXACIN [Suspect]
     Indication: ANTIBIOTIC THERAPY
  3. CEFUROXIME [Concomitant]

REACTIONS (16)
  - Drug reaction with eosinophilia and systemic symptoms [None]
  - Respiratory failure [None]
  - Septic shock [None]
  - Renal failure [None]
  - Dermatitis exfoliative [None]
  - Livedo reticularis [None]
  - Cerebral haemorrhage [None]
  - Continuous haemodiafiltration [None]
  - Coagulation time prolonged [None]
  - Multi-organ failure [None]
  - Drug hypersensitivity [None]
  - Acute respiratory distress syndrome [None]
  - Pneumonia [None]
  - Aspergillus infection [None]
  - Metabolic acidosis [None]
  - Unresponsive to stimuli [None]
